FAERS Safety Report 8106899-X (Version None)
Quarter: 2012Q1

REPORT INFORMATION
  Report Type: 
  Country: None (occurrence: None)
  Receive Date: 20120202
  Receipt Date: 20120124
  Transmission Date: 20120608
  Serious: Yes (Other)
  Sender: FDA-Public Use
  Company Number: US-BAYER-2012-007928

PATIENT
  Age: 84 Year
  Sex: Female

DRUGS (2)
  1. DRONEDARONE HCL [Interacting]
  2. CIPROFLOXACIN [Suspect]

REACTIONS (4)
  - KIDNEY ENLARGEMENT [None]
  - PYREXIA [None]
  - NEPHROLITHIASIS [None]
  - URINARY TRACT INFECTION [None]
